FAERS Safety Report 14424122 (Version 2)
Quarter: 2018Q3

REPORT INFORMATION
  Report Type: Report from Study
  Country: DE (occurrence: DE)
  Receive Date: 20180123
  Receipt Date: 20180709
  Transmission Date: 20181010
  Serious: Yes (Other)
  Sender: FDA-Public Use
  Company Number: DE-NODEN PHARMA DAC-NOD-2018-000003

PATIENT
  Age: 64 Year
  Sex: Male

DRUGS (1)
  1. ALISKIREN [Suspect]
     Active Substance: ALISKIREN
     Indication: ESSENTIAL HYPERTENSION
     Dosage: 12.5/25 MG, CAPSULE
     Route: 048

REACTIONS (1)
  - Hypokalaemia [Unknown]
